FAERS Safety Report 7215812-9 (Version None)
Quarter: 2011Q1

REPORT INFORMATION
  Report Type: 
  Country: None (occurrence: None)
  Receive Date: 20110107
  Receipt Date: 20110105
  Transmission Date: 20110831
  Serious: Yes (Death, Other)
  Sender: FDA-Public Use
  Company Number: FR-PFIZER INC-2010169918

PATIENT
  Age: 71 Year
  Sex: Female

DRUGS (22)
  1. RAMIPRIL [Concomitant]
  2. FUROSEMIDE [Concomitant]
  3. ATARAX [Concomitant]
  4. SALBUTAMOL [Concomitant]
  5. PLAVIX [Concomitant]
  6. BISOPROLOL [Concomitant]
  7. DIGOXINE [Concomitant]
     Dosage: UNK
     Dates: start: 20100930
  8. CIPROFLOXACIN HYDROCHLORIDE [Concomitant]
     Dosage: UNK
     Dates: start: 20101006
  9. PULMICORT [Concomitant]
     Dosage: UNK
     Dates: start: 20100930
  10. SERETIDE [Concomitant]
     Dosage: UNK
     Dates: start: 20101011
  11. TAZOCILLINE [Suspect]
     Dosage: 4 G, 3X/DAY
     Route: 042
     Dates: start: 20100907, end: 20100913
  12. TAZOCILLINE [Suspect]
     Dosage: 4 G, 3X/DAY
     Route: 042
     Dates: start: 20101019, end: 20101025
  13. OMEPRAZOLE [Concomitant]
     Dosage: 20 MG, 1X/DAY
  14. BRICANYL [Concomitant]
  15. CORDARONE [Concomitant]
  16. SOLUPRED [Concomitant]
  17. ATROVENT [Concomitant]
     Dosage: UNK
     Dates: start: 20100930
  18. TAZOCILLINE [Suspect]
     Dosage: 4 G, 3X/DAY
     Route: 042
     Dates: start: 20100927, end: 20101011
  19. TAHOR [Concomitant]
  20. FRAXODI [Concomitant]
     Dosage: UNK
     Dates: start: 20100930
  21. SPIRIVA [Concomitant]
     Dosage: UNK
     Dates: start: 20101011
  22. LEVOTHYROX [Concomitant]

REACTIONS (4)
  - ANAEMIA [None]
  - THROMBOCYTOPENIA [None]
  - RESPIRATORY FAILURE [None]
  - NEUTROPENIA [None]
